FAERS Safety Report 14497438 (Version 3)
Quarter: 2020Q3

REPORT INFORMATION
  Report Type: Report from Study
  Country: CH (occurrence: CH)
  Receive Date: 20180207
  Receipt Date: 20180717
  Transmission Date: 20201104
  Serious: Yes (Hospitalization)
  Sender: FDA-Public Use
  Company Number: CH-JNJFOC-20180206187

PATIENT
  Age: 57 Year
  Sex: Female
  Weight: 53 kg

DRUGS (4)
  1. TRABECTEDIN [Suspect]
     Active Substance: TRABECTEDIN
     Route: 042
  2. PLD [Suspect]
     Active Substance: DOXORUBICIN HYDROCHLORIDE
     Route: 042
  3. TRABECTEDIN [Suspect]
     Active Substance: TRABECTEDIN
     Indication: OVARIAN CANCER
     Dosage: (INTENDED DOSE: 1.10 [UNSPECIFIED UNITS] AND ADMINISTERED DOSE: 1.10 [UNSPECIFIED UNITS])
     Route: 042
     Dates: start: 20170920
  4. PLD [Suspect]
     Active Substance: DOXORUBICIN HYDROCHLORIDE
     Indication: OVARIAN CANCER
     Dosage: (INTENDED DOSE: 30.0 [UNSPECIFIED UNITS] AND ADMINISTERED DOSE: 26.0 [UNSPECIFIED UNITS])
     Route: 042
     Dates: start: 20170920

REACTIONS (1)
  - Febrile neutropenia [Recovered/Resolved]

NARRATIVE: CASE EVENT DATE: 20180202
